FAERS Safety Report 9083542 (Version 1)
Quarter: 2013Q1

REPORT INFORMATION
  Report Type: Report from Study
  Country: US (occurrence: US)
  Receive Date: 20130130
  Receipt Date: 20130130
  Transmission Date: 20140127
  Serious: No
  Sender: FDA-Public Use
  Company Number: US-ABBOTT-12P-163-0952552-00

PATIENT
  Age: 42 None
  Sex: Female
  Weight: 56.3 kg

DRUGS (4)
  1. HUMIRA 40 MG/0.8 ML PEN [Suspect]
     Indication: ANKYLOSING SPONDYLITIS
     Dates: start: 201004
  2. CELEBREX [Concomitant]
     Indication: ANKYLOSING SPONDYLITIS
  3. FLEXERIL [Concomitant]
     Indication: ANKYLOSING SPONDYLITIS
  4. DEXILANT [Concomitant]
     Indication: PROPHYLAXIS AGAINST GASTROINTESTINAL ULCER

REACTIONS (12)
  - Wrong technique in drug usage process [Not Recovered/Not Resolved]
  - Pain [Not Recovered/Not Resolved]
  - Device malfunction [Recovered/Resolved]
  - Incorrect dose administered [Not Recovered/Not Resolved]
  - Device malfunction [Not Recovered/Not Resolved]
  - Incorrect dose administered [Not Recovered/Not Resolved]
  - Injection site urticaria [Recovered/Resolved]
  - Product quality issue [Not Recovered/Not Resolved]
  - Injection site bruising [Not Recovered/Not Resolved]
  - Injection site haemorrhage [Not Recovered/Not Resolved]
  - Pain [Not Recovered/Not Resolved]
  - Injection site pain [Not Recovered/Not Resolved]
